FAERS Safety Report 7053636-6 (Version None)
Quarter: 2010Q4

REPORT INFORMATION
  Report Type: 
  Country: None (occurrence: None)
  Receive Date: 20101020
  Receipt Date: 20101014
  Transmission Date: 20110411
  Serious: Yes (Hospitalization, Other)
  Sender: FDA-Public Use
  Company Number: BR-ROCHE-734248

PATIENT
  Sex: Female
  Weight: 60 kg

DRUGS (2)
  1. RIVOTRIL [Suspect]
     Indication: NERVOUS SYSTEM DISORDER
     Route: 048
     Dates: start: 19970101
  2. RIVOTRIL [Suspect]
     Route: 048
     Dates: start: 20100901

REACTIONS (14)
  - ASTHENIA [None]
  - BONE PAIN [None]
  - BURNING SENSATION [None]
  - DECREASED APPETITE [None]
  - DEPRESSION [None]
  - GINGIVAL PAIN [None]
  - MALAISE [None]
  - MEDICATION ERROR [None]
  - SENSITIVITY OF TEETH [None]
  - TREMOR [None]
  - TUMOUR HAEMORRHAGE [None]
  - URINARY TRACT INFECTION [None]
  - VISION BLURRED [None]
  - WEIGHT DECREASED [None]
